FAERS Safety Report 22389004 (Version 2)
Quarter: 2023Q2

REPORT INFORMATION
  Report Type: Spontaneous
  Country: JP (occurrence: JP)
  Receive Date: 20230531
  Receipt Date: 20230607
  Transmission Date: 20230722
  Serious: Yes (Other)
  Sender: FDA-Public Use
  Company Number: JP-BEH-2023159331

PATIENT

DRUGS (1)
  1. HUMAN IMMUNOGLOBULIN G [Suspect]
     Active Substance: HUMAN IMMUNOGLOBULIN G
     Indication: Product used for unknown indication
     Dosage: UNK UNK, QW
     Route: 064

REACTIONS (3)
  - Neonatal alloimmune thrombocytopenia [Recovered/Resolved]
  - Platelet count abnormal [Recovered/Resolved]
  - Foetal exposure during pregnancy [Recovered/Resolved]
